FAERS Safety Report 13135409 (Version 1)
Quarter: 2017Q1

REPORT INFORMATION
  Report Type: Report from Study
  Country: KR (occurrence: KR)
  Receive Date: 20170120
  Receipt Date: 20170120
  Transmission Date: 20170428
  Serious: Yes (Death, Other)
  Sender: FDA-Public Use
  Company Number: KR-MYLANLABS-2017M1002614

PATIENT

DRUGS (5)
  1. ETOPOSIDE. [Suspect]
     Active Substance: ETOPOSIDE
     Indication: T-CELL LYMPHOMA
     Dosage: 100 MG/M2; ON DAYS 1-3
     Route: 042
  2. IFOSFAMIDE. [Suspect]
     Active Substance: IFOSFAMIDE
     Indication: T-CELL LYMPHOMA
     Dosage: 1.5 G/M2; DAYS 1-3
     Route: 042
  3. METHOTREXATE. [Suspect]
     Active Substance: METHOTREXATE
     Indication: T-CELL LYMPHOMA
     Dosage: 30 MG/M2; ON DAYS 3 AND 10
     Route: 042
  4. MESNA. [Suspect]
     Active Substance: MESNA
     Indication: PROPHYLAXIS
     Dosage: 1.5 G/M2; DAYS 1-3
     Route: 042
  5. PREDNISOLONE. [Suspect]
     Active Substance: PREDNISOLONE
     Indication: T-CELL LYMPHOMA
     Dosage: 60 MG/M2; ON DAYS 1-5
     Route: 048

REACTIONS (2)
  - Pneumonia [Fatal]
  - Sepsis [Fatal]
